FAERS Safety Report 26040071 (Version 1)
Quarter: 2025Q4

REPORT INFORMATION
  Report Type: Spontaneous
  Country: CA (occurrence: CA)
  Receive Date: 20251113
  Receipt Date: 20251113
  Transmission Date: 20260118
  Serious: Yes (Death)
  Sender: ROCHE
  Company Number: CA-ROCHE-10000434959

PATIENT
  Age: 71 Year
  Sex: Male

DRUGS (1)
  1. ERLOTINIB HYDROCHLORIDE [Suspect]
     Active Substance: ERLOTINIB HYDROCHLORIDE
     Indication: Renal cell carcinoma
     Route: 048

REACTIONS (1)
  - Death [Fatal]
